FAERS Safety Report 7759307-2 (Version None)
Quarter: 2011Q3

REPORT INFORMATION
  Report Type: 
  Country: None (occurrence: None)
  Receive Date: 20110915
  Receipt Date: 20110907
  Transmission Date: 20111222
  Serious: Yes (Other)
  Sender: FDA-Public Use
  Company Number: 2011MA012985

PATIENT
  Age: 58 Year
  Sex: Male

DRUGS (3)
  1. TRAMADOL HYDROCHLORIDE [Suspect]
     Indication: BACK PAIN
     Dosage: PRN;PO
     Route: 048
  2. VOLTAREN [Concomitant]
  3. OMEPRAZOLE [Concomitant]

REACTIONS (3)
  - PRURITUS [None]
  - PHARYNGEAL OEDEMA [None]
  - DYSPHAGIA [None]
